FAERS Safety Report 18566114 (Version 1)
Quarter: 2020Q4

REPORT INFORMATION
  Report Type: Spontaneous
  Country: US (occurrence: US)
  Receive Date: 20201201
  Receipt Date: 20201201
  Transmission Date: 20210114
  Serious: Yes (Other)
  Sender: FDA-Public Use
  Company Number: NVSC2020US313587

PATIENT
  Sex: Female
  Weight: 81.65 kg

DRUGS (4)
  1. IBRANCE [Suspect]
     Active Substance: PALBOCICLIB
     Indication: PRODUCT USED FOR UNKNOWN INDICATION
     Dosage: UNK
     Route: 065
     Dates: start: 20201023
  2. BENADRYL [Concomitant]
     Active Substance: DIPHENHYDRAMINE HYDROCHLORIDE
     Indication: PRODUCT USED FOR UNKNOWN INDICATION
     Dosage: UNK
     Route: 065
  3. ROBAXIN [Concomitant]
     Active Substance: METHOCARBAMOL
     Indication: MUSCLE RELAXANT THERAPY
     Route: 065
  4. LETROZOLE. [Suspect]
     Active Substance: LETROZOLE
     Indication: BREAST CANCER
     Dosage: 2.5 MG (1 TABLET, TAKES IT EVERYDAY AT 3:50PM BY MOUTH)
     Route: 048
     Dates: start: 202006

REACTIONS (10)
  - Blood glucose increased [Recovering/Resolving]
  - Pain [Unknown]
  - Anxiety [Unknown]
  - Oedema [Unknown]
  - Hypoaesthesia oral [Unknown]
  - Pulmonary mass [Unknown]
  - Rotator cuff syndrome [Unknown]
  - Hypoaesthesia [Unknown]
  - Metastases to bone [Unknown]
  - Weight decreased [Unknown]
